FAERS Safety Report 13992328 (Version 2)
Quarter: 2017Q4

REPORT INFORMATION
  Report Type: Spontaneous
  Country: US (occurrence: US)
  Receive Date: 20170920
  Receipt Date: 20171122
  Transmission Date: 20180321
  Serious: No
  Sender: FDA-Public Use
  Company Number: US-JNJFOC-20170720242

PATIENT
  Age: 60 Year
  Sex: Male
  Weight: 72.6 kg

DRUGS (3)
  1. NIZORAL [Suspect]
     Active Substance: KETOCONAZOLE
     Indication: PSORIASIS
     Dosage: STRENGTH: 2%, 1-3 TIMES A WEEK
     Route: 061
     Dates: start: 20170517
  2. ATORVASTATIN [Suspect]
     Active Substance: ATORVASTATIN
     Indication: PRODUCT USED FOR UNKNOWN INDICATION
     Route: 065
     Dates: start: 2017
  3. FLUOCINOLONE [Suspect]
     Active Substance: FLUOCINOLONE
     Indication: PSORIASIS
     Dosage: STRENGTH: 0.01% SCALP OIL; 1 TO 3 TIMES A WEEK
     Route: 061
     Dates: start: 20170517

REACTIONS (6)
  - Pain of skin [Recovering/Resolving]
  - Pruritus [Recovering/Resolving]
  - Hair colour changes [Unknown]
  - Alopecia [Not Recovered/Not Resolved]
  - Hepatic enzyme increased [Unknown]
  - Application site pain [Recovering/Resolving]

NARRATIVE: CASE EVENT DATE: 201705
